FAERS Safety Report 21861805 (Version 1)
Quarter: 2023Q1

REPORT INFORMATION
  Report Type: Spontaneous
  Country: JP (occurrence: JP)
  Receive Date: 20230113
  Receipt Date: 20230113
  Transmission Date: 20230418
  Serious: Yes (Death, Other)
  Sender: FDA-Public Use
  Company Number: JP-JAZZ-2023-JP-000719

PATIENT
  Age: 49 Year
  Sex: Male
  Weight: 56 kg

DRUGS (1)
  1. DEFITELIO [Suspect]
     Active Substance: DEFIBROTIDE SODIUM
     Indication: Venoocclusive liver disease
     Dosage: 25 MILLIGRAM/KILOGRAM
     Route: 042
     Dates: start: 20220905, end: 20220908

REACTIONS (2)
  - Venoocclusive liver disease [Fatal]
  - Hypotension [Fatal]

NARRATIVE: CASE EVENT DATE: 20220908
